FAERS Safety Report 10922896 (Version 2)
Quarter: 2015Q2

REPORT INFORMATION
  Report Type: Spontaneous
  Country: US (occurrence: US)
  Receive Date: 20150317
  Receipt Date: 20150401
  Transmission Date: 20150821
  Serious: Yes (Hospitalization)
  Sender: FDA-Public Use
  Company Number: US-ACTELION-A-NJ2015-113640

PATIENT
  Age: 82 Year
  Sex: Female

DRUGS (3)
  1. RIOCIGUAT [Concomitant]
     Active Substance: RIOCIGUAT
  2. OPSUMIT [Suspect]
     Active Substance: MACITENTAN
     Indication: PULMONARY ARTERIAL HYPERTENSION
     Dosage: 10 MG, UNK
     Route: 048
  3. TRACLEER [Suspect]
     Active Substance: BOSENTAN\BOSENTAN MONOHYDRATE
     Indication: PULMONARY ARTERIAL HYPERTENSION
     Dosage: UNK
     Route: 048
     Dates: end: 20150223

REACTIONS (11)
  - Flushing [Unknown]
  - Fatigue [Unknown]
  - Cardiac disorder [Unknown]
  - Presyncope [Unknown]
  - Malaise [Unknown]
  - Dizziness [Unknown]
  - Blood pressure decreased [Unknown]
  - Cardiac pacemaker insertion [Unknown]
  - Palpitations [Unknown]
  - Heart rate decreased [Unknown]
  - Scoliosis [Unknown]

NARRATIVE: CASE EVENT DATE: 201503
